FAERS Safety Report 8302520-6 (Version None)
Quarter: 2012Q2

REPORT INFORMATION
  Report Type: 
  Country: None (occurrence: None)
  Receive Date: 20120420
  Receipt Date: 20120413
  Transmission Date: 20120825
  Serious: Yes (Other)
  Sender: FDA-Public Use
  Company Number: US-B.I. PHARMACEUTICALS,INC./RIDGEFIELD-2012-EU-02102GD

PATIENT
  Sex: Male
  Weight: 97 kg

DRUGS (4)
  1. ANTIRETROVIRAL THERAPY [Concomitant]
     Indication: HIV INFECTION
  2. RAPAMUNE [Suspect]
     Indication: KAPOSI'S SARCOMA AIDS RELATED
     Dosage: 4.9 MG
     Route: 048
  3. RAPAMUNE [Suspect]
     Dosage: 2.8 MG
     Route: 048
  4. NEVIRAPINE [Suspect]
     Indication: HIV INFECTION

REACTIONS (2)
  - THROMBOPHLEBITIS SUPERFICIAL [None]
  - CHEMOTHERAPEUTIC DRUG LEVEL ABOVE THERAPEUTIC [None]
